FAERS Safety Report 18644767 (Version 1)
Quarter: 2020Q4

REPORT INFORMATION
  Report Type: Spontaneous
  Country: US (occurrence: US)
  Receive Date: 20201221
  Receipt Date: 20201221
  Transmission Date: 20210114
  Serious: No
  Sender: FDA-Public Use
  Company Number: US-BAYER-2020-281510

PATIENT
  Age: 98 Year
  Sex: Female

DRUGS (1)
  1. MIRALAX [Suspect]
     Active Substance: POLYETHYLENE GLYCOL 3350
     Indication: GASTROINTESTINAL DISORDER
     Dosage: 2 TABLESPOON
     Route: 048

REACTIONS (4)
  - Wrong technique in product usage process [None]
  - Incorrect dose administered [Unknown]
  - Somnolence [None]
  - Diarrhoea [Unknown]
